FAERS Safety Report 14604334 (Version 1)
Quarter: 2018Q1

REPORT INFORMATION
  Report Type: Spontaneous
  Country: IL (occurrence: IL)
  Receive Date: 20180306
  Receipt Date: 20180306
  Transmission Date: 20180509
  Serious: Yes (Hospitalization)
  Sender: FDA-Public Use
  Company Number: IL-NAPPMUNDI-GBR-2018-0053739

PATIENT
  Age: 88 Year
  Sex: Male

DRUGS (1)
  1. BUTRANS [Suspect]
     Active Substance: BUPRENORPHINE
     Indication: PRODUCT USED FOR UNKNOWN INDICATION
     Dosage: 10 MCG, Q1H [10 MCG/H STRENGTH]
     Route: 062

REACTIONS (2)
  - Constipation [Unknown]
  - Intestinal obstruction [Unknown]
